FAERS Safety Report 20499847 (Version 1)
Quarter: 2022Q1

REPORT INFORMATION
  Report Type: Spontaneous
  Country: US (occurrence: US)
  Receive Date: 20220222
  Receipt Date: 20220222
  Transmission Date: 20220423
  Serious: No
  Sender: FDA-Public Use
  Company Number: US-UCBSA-2021017872

PATIENT
  Age: 46 Year
  Sex: Female

DRUGS (30)
  1. LEVETIRACETAM [Suspect]
     Active Substance: LEVETIRACETAM
     Indication: Epilepsy
     Dosage: 1500 MILLIGRAM, 2X/DAY (BID)
  2. LEVETIRACETAM [Suspect]
     Active Substance: LEVETIRACETAM
     Dosage: 2000 MILLIGRAM, 2X/DAY (BID)
     Route: 048
  3. LACOSAMIDE [Concomitant]
     Active Substance: LACOSAMIDE
     Indication: Epilepsy
     Dosage: 150 MILLIGRAM, 2X/DAY (BID)
  4. LACOSAMIDE [Concomitant]
     Active Substance: LACOSAMIDE
     Dosage: 50 MILLIGRAM, 2X/DAY (BID)
     Route: 048
  5. EPIDIOLEX [Concomitant]
     Active Substance: CANNABIDIOL
     Indication: Epilepsy
     Dosage: 5 MILLIGRAM PER KILOGRAM
     Dates: start: 20190625, end: 20190625
  6. EPIDIOLEX [Concomitant]
     Active Substance: CANNABIDIOL
     Dosage: 10 MILLIGRAM PER KILOGRAM
     Dates: start: 20190702, end: 20190708
  7. EPIDIOLEX [Concomitant]
     Active Substance: CANNABIDIOL
     Dosage: 15 MILLIGRAM PER KILOGRAM
     Dates: start: 20190709, end: 20190715
  8. EPIDIOLEX [Concomitant]
     Active Substance: CANNABIDIOL
     Dosage: 20 MILLIGRAM PER KILOGRAM
     Dates: start: 20190716, end: 20191212
  9. WARFARIN [Concomitant]
     Active Substance: WARFARIN
     Indication: Deep vein thrombosis
     Dosage: 90 MILLIGRAMS
     Dates: start: 20181001, end: 20181204
  10. WARFARIN [Concomitant]
     Active Substance: WARFARIN
     Dosage: 85MILLIGRAMS
     Dates: start: 20190115
  11. WARFARIN [Concomitant]
     Active Substance: WARFARIN
     Dosage: 80 MILLIGRAMS
     Dates: start: 20190205, end: 20190702
  12. WARFARIN [Concomitant]
     Active Substance: WARFARIN
     Dosage: 75 MILLIGRAMS
     Dates: start: 20190709
  13. WARFARIN [Concomitant]
     Active Substance: WARFARIN
     Dosage: 65 MILLIGRAMS
     Dates: start: 20190716, end: 20191212
  14. CARBAMAZEPINE [Concomitant]
     Active Substance: CARBAMAZEPINE
     Indication: Epilepsy
     Dosage: 600 MG ORALLY DAILY AND 900 MG ORALLY NIGHTLY
     Route: 048
  15. ACETAMINOPHEN [Concomitant]
     Active Substance: ACETAMINOPHEN
     Indication: Product used for unknown indication
     Dosage: 1000 MILLIGRAM, 2X/DAY (BID) AS NEEDED
  16. ATORVASTATIN [Concomitant]
     Active Substance: ATORVASTATIN
     Indication: Hyperlipidaemia
     Dosage: 40 MILLIGRAM, ONCE DAILY (QD)
  17. AZELASTINE [Concomitant]
     Active Substance: AZELASTINE
     Indication: Product used for unknown indication
     Dosage: SPRAYS IN BOTH NARES
     Route: 045
  18. CARVEDILOL [Concomitant]
     Active Substance: CARVEDILOL
     Indication: Hypertension
     Dosage: 6.25 MILLIGRAM, 2X/DAY (BID)
  19. CETIRIZINE [Concomitant]
     Active Substance: CETIRIZINE HYDROCHLORIDE
     Indication: Product used for unknown indication
     Dosage: 10 MILLIGRAMS DAILY
  20. FLUTICASONE [Concomitant]
     Active Substance: FLUTICASONE
     Indication: Product used for unknown indication
     Dosage: 1 SPRAY IN EACH NARES
     Route: 045
  21. FOLIC ACID [Concomitant]
     Active Substance: FOLIC ACID
     Indication: Product used for unknown indication
     Dosage: 1 MILLIGRAM DAILY
  22. KETOCONAZOLE [Concomitant]
     Active Substance: KETOCONAZOLE
     Indication: Product used for unknown indication
     Dosage: 2% APPLIED TO FEET TWICE DAILY
     Route: 061
  23. METHOTREXATE [Concomitant]
     Active Substance: METHOTREXATE
     Indication: Product used for unknown indication
     Dosage: 20 MILLIGRAM, WEEKLY (QW)
  24. MONTELUKAST [Concomitant]
     Active Substance: MONTELUKAST SODIUM
     Indication: Product used for unknown indication
     Dosage: 10 MILLIGRAM, ONCE DAILY (QD)
  25. MUPIROCIN [Concomitant]
     Active Substance: MUPIROCIN
     Indication: Product used for unknown indication
     Dosage: UNK, 3X/DAY (TID)
     Route: 061
  26. MYCOPHENOLIC ACID [Concomitant]
     Active Substance: MYCOPHENOLIC ACID
     Indication: Product used for unknown indication
     Dosage: 1080 MILLIGRAM, 2X/DAY (BID)
  27. OMEPRAZOLE [Concomitant]
     Active Substance: OMEPRAZOLE
     Indication: Product used for unknown indication
     Dosage: 40 MILLIGRAMS DAILY
  28. PREDNISONE [Concomitant]
     Active Substance: PREDNISONE
     Indication: Product used for unknown indication
     Dosage: 20 MILLIGRAMS DAILY
  29. RANITIDINE [Concomitant]
     Active Substance: RANITIDINE
     Indication: Product used for unknown indication
     Dosage: 300 MILLIGRAMS DAILY
  30. TRAMADOL [Concomitant]
     Active Substance: TRAMADOL
     Indication: Product used for unknown indication
     Dosage: 50 MILLIGRAM, 4X/DAY (QID)

REACTIONS (2)
  - Overdose [Unknown]
  - Product use issue [Unknown]
